FAERS Safety Report 24325966 (Version 1)
Quarter: 2024Q3

REPORT INFORMATION
  Report Type: Spontaneous
  Country: TR (occurrence: TR)
  Receive Date: 20240917
  Receipt Date: 20240917
  Transmission Date: 20241017
  Serious: Yes (Hospitalization, Other)
  Sender: SANDOZ
  Company Number: TR-MLMSERVICE-20190723-1863336-1

PATIENT
  Age: 45 Year
  Sex: Female

DRUGS (8)
  1. MYCOPHENOLATE MOFETIL [Suspect]
     Active Substance: MYCOPHENOLATE MOFETIL
     Indication: Heart transplant
     Dosage: UNK
     Route: 065
  2. MYCOPHENOLATE MOFETIL [Suspect]
     Active Substance: MYCOPHENOLATE MOFETIL
     Indication: Immunosuppressant drug therapy
  3. PREDNISOLONE [Suspect]
     Active Substance: PREDNISOLONE
     Indication: Heart transplant
     Dosage: UNK
     Route: 065
  4. PREDNISOLONE [Suspect]
     Active Substance: PREDNISOLONE
     Indication: Immunosuppressant drug therapy
  5. TACROLIMUS [Suspect]
     Active Substance: TACROLIMUS
     Indication: Heart transplant
     Dosage: UNK
     Route: 065
  6. TACROLIMUS [Suspect]
     Active Substance: TACROLIMUS
     Indication: Immunosuppressant drug therapy
  7. Immunoglobulin [Concomitant]
     Indication: Transplant rejection
     Dosage: UNK
     Route: 042
  8. Immunoglobulin [Concomitant]
     Indication: Transplant rejection

REACTIONS (6)
  - Arterial haemorrhage [Recovered/Resolved]
  - Haematoma [Recovering/Resolving]
  - Haemodynamic instability [Recovered/Resolved]
  - Ecchymosis [Unknown]
  - Haemoglobin decreased [Recovered/Resolved]
  - Blood pressure decreased [Recovered/Resolved]
